FAERS Safety Report 6135013-5 (Version None)
Quarter: 2009Q1

REPORT INFORMATION
  Report Type: 
  Country: None (occurrence: None)
  Receive Date: 20090325
  Receipt Date: 20090308
  Transmission Date: 20090719
  Serious: Yes (Hospitalization, Other)
  Sender: FDA-Public Use
  Company Number: 2005S1000460

PATIENT
  Age: 68 Year
  Sex: Female
  Weight: 85.7298 kg

DRUGS (9)
  1. PHOSPHOSODA GINGER LEMON [Suspect]
     Indication: COLONOSCOPY
     Dosage: 90 ML; TOTAL; PO
     Route: 050
     Dates: start: 20000604, end: 20000607
  2. PHOSPHOSODA GINGER LEMON [Suspect]
     Indication: HERNIA REPAIR
     Dosage: 90 ML; TOTAL; PO
     Route: 050
     Dates: start: 20000604, end: 20000607
  3. METOPROLOL [Concomitant]
  4. ACCUPRIL [Concomitant]
  5. ALEVE [Concomitant]
  6. ALKA SELTZER [Concomitant]
  7. VASOTEC [Concomitant]
  8. SODIUM PHOSPHATE DIABASIC/SODIUM PHOSPHATE [Concomitant]
  9. MONOBASIC (ANHYDRATE) [Concomitant]

REACTIONS (11)
  - ANAEMIA OF CHRONIC DISEASE [None]
  - CHOLELITHIASIS [None]
  - DEHYDRATION [None]
  - FRACTURE NONUNION [None]
  - HEPATIC STEATOSIS [None]
  - METABOLIC ACIDOSIS [None]
  - NEPHROSCLEROSIS [None]
  - RENAL ARTERY STENOSIS [None]
  - RENAL CYST [None]
  - RENAL FAILURE ACUTE [None]
  - RENAL TUBULAR NECROSIS [None]
